FAERS Safety Report 6369740-1 (Version None)
Quarter: 2009Q3

REPORT INFORMATION
  Report Type: 
  Country: None (occurrence: None)
  Receive Date: 20090921
  Receipt Date: 20090921
  Transmission Date: 20100115
  Serious: Yes (Hospitalization)
  Sender: FDA-Public Use
  Company Number: None

PATIENT
  Age: 49 Year
  Sex: Female
  Weight: 49.9 kg

DRUGS (1)
  1. GAMMAGARD LIQUID [Suspect]
     Indication: BLOOD IMMUNOGLOBULIN G DECREASED
     Dosage: 300ML ONCE IV DRIP
     Route: 041
     Dates: start: 20090909, end: 20090909

REACTIONS (1)
  - SERUM SICKNESS [None]
